FAERS Safety Report 23668525 (Version 1)
Quarter: 2024Q1

REPORT INFORMATION
  Report Type: Spontaneous
  Country: US (occurrence: None)
  Receive Date: 20240323
  Receipt Date: 20240323
  Transmission Date: 20240410
  Serious: Yes (Other)
  Sender: FDA-Public Use
  Company Number: None

PATIENT
  Sex: 0

DRUGS (1)
  1. AMMONIA INHALANT [Suspect]
     Active Substance: AMMONIA

REACTIONS (9)
  - Product advertising issue [None]
  - Product formulation issue [None]
  - Eye irritation [None]
  - Nasal discomfort [None]
  - Throat irritation [None]
  - Cough [None]
  - Obstructive airways disorder [None]
  - Vomiting [None]
  - Dizziness [None]

NARRATIVE: CASE EVENT DATE: 20240301
